FAERS Safety Report 5972823-9 (Version None)
Quarter: 2008Q4

REPORT INFORMATION
  Report Type: 
  Country: None (occurrence: None)
  Receive Date: 20081201
  Receipt Date: 20081119
  Transmission Date: 20090506
  Serious: Yes (Hospitalization)
  Sender: FDA-Public Use
  Company Number: JP-WYE-H04666408

PATIENT
  Age: 75 Year
  Sex: Male

DRUGS (6)
  1. ANCARON [Suspect]
     Indication: VENTRICULAR TACHYCARDIA
     Dosage: 400 MG INITIAL LOADING DOSE
     Route: 065
  2. ANCARON [Suspect]
     Route: 065
  3. ANCARON [Suspect]
     Route: 065
     Dates: start: 20061004
  4. ANCARON [Suspect]
     Route: 065
     Dates: start: 20070207, end: 20071206
  5. WARFARIN POTASSIUM [Concomitant]
     Indication: ATRIAL FIBRILLATION
     Dosage: DOSE AND FREQUENCY NOT SPECIFIED
     Route: 065
     Dates: start: 20040601, end: 20071206
  6. INSULIN [Concomitant]
     Indication: DIABETES MELLITUS
     Dosage: DOSE AND FREQUENCY NOT SPECIFIED
     Route: 065

REACTIONS (2)
  - LUNG DISORDER [None]
  - PULMONARY ALVEOLAR HAEMORRHAGE [None]
